FAERS Safety Report 16803505 (Version 3)
Quarter: 2019Q4

REPORT INFORMATION
  Report Type: Spontaneous
  Country: US (occurrence: US)
  Receive Date: 20190913
  Receipt Date: 20191015
  Transmission Date: 20200122
  Serious: Yes (Other)
  Sender: FDA-Public Use
  Company Number: US-CIPLA LTD.-2019US06274

PATIENT

DRUGS (2)
  1. PHENTERMINE. [Concomitant]
     Active Substance: PHENTERMINE
     Indication: WEIGHT DECREASED
     Dosage: 37.5 MILLIGRAM, QD (ONCE A DAY)
     Route: 065
  2. TOPIRAMATE. [Suspect]
     Active Substance: TOPIRAMATE
     Indication: WEIGHT DECREASED
     Dosage: 50 MILLIGRAM, QD (ONE TABLET EVERY DAY AT BED TIME)
     Route: 048
     Dates: start: 20190824, end: 20190831

REACTIONS (8)
  - Off label use [Unknown]
  - Decreased appetite [Recovered/Resolved]
  - General physical condition abnormal [Recovered/Resolved]
  - Impaired driving ability [Recovered/Resolved]
  - Postmenopausal haemorrhage [Recovered/Resolved]
  - Confusional state [Recovered/Resolved]
  - Taste disorder [Recovered/Resolved]
  - Product use in unapproved indication [Unknown]

NARRATIVE: CASE EVENT DATE: 20190824
